FAERS Safety Report 7663765-1 (Version None)
Quarter: 2011Q3

REPORT INFORMATION
  Report Type: 
  Country: None (occurrence: None)
  Receive Date: 20110805
  Receipt Date: 20100729
  Transmission Date: 20111222
  Serious: No
  Sender: FDA-Public Use
  Company Number: US-ABBOTT-10P-163-0661233-00

PATIENT
  Sex: Male
  Weight: 92.616 kg

DRUGS (4)
  1. TEMAZEPAM [Concomitant]
     Indication: INSOMNIA
  2. LISINOPRIL [Concomitant]
     Indication: BLOOD PRESSURE
     Dosage: 1-10/12 DAILY
  3. NIASPAN [Suspect]
     Indication: BLOOD TRIGLYCERIDES INCREASED
  4. SERTRALINE HYDROCHLORIDE [Concomitant]
     Indication: BLOOD PRESSURE

REACTIONS (2)
  - DIZZINESS [None]
  - MYALGIA [None]
